FAERS Safety Report 8418418 (Version 12)
Quarter: 2013Q2

REPORT INFORMATION
  Report Type: Report from Study
  Country: US (occurrence: US)
  Receive Date: 20120221
  Receipt Date: 20130405
  Transmission Date: 20140414
  Serious: Yes (Other)
  Sender: FDA-Public Use
  Company Number: US-ROCHE-1037944

PATIENT
  Age: 57 Year
  Sex: Male

DRUGS (17)
  1. VEMURAFENIB [Suspect]
     Indication: PAPILLARY THYROID CANCER
     Dosage: LAST DOSE PROIR TO SAE ON 19/JUN/2012.
     Route: 065
     Dates: start: 20111027
  2. LEVOTHYROXINE SODIUM [Concomitant]
     Indication: HYPOTHYROIDISM
     Route: 048
     Dates: start: 20100305
  3. AMLODIPINE [Concomitant]
     Indication: HYPERTENSION
     Route: 048
     Dates: start: 20110916, end: 20111120
  4. AMLODIPINE [Concomitant]
     Route: 048
     Dates: start: 20111121
  5. AMLODIPINE [Concomitant]
     Route: 048
     Dates: start: 20120615, end: 20120619
  6. AMLODIPINE [Concomitant]
     Route: 048
     Dates: start: 20120629, end: 20120705
  7. METOCLOPRAMIDE [Concomitant]
     Indication: NAUSEA
     Route: 048
     Dates: start: 20111020
  8. METOCLOPRAMIDE [Concomitant]
     Indication: VOMITING
     Route: 048
     Dates: start: 20120101
  9. DIAZEPAM [Concomitant]
     Indication: BACK PAIN
     Route: 048
     Dates: start: 20111020, end: 20120617
  10. PSYLLIUM [Concomitant]
     Indication: CONSTIPATION
     Route: 048
     Dates: start: 20110916
  11. CICLOPIROX [Concomitant]
     Indication: TINEA CRURIS
     Dosage: 1 APPLICATION
     Route: 065
     Dates: start: 20111020
  12. AZITHROMYCIN [Concomitant]
     Indication: PYREXIA
     Route: 065
     Dates: start: 20111128
  13. METHYLCELLULOSE [Concomitant]
     Indication: CONSTIPATION
     Dosage: 1 TEASPOON AS NEEDED
     Route: 048
     Dates: start: 20120625
  14. CICLOPIROX [Concomitant]
     Dosage: TOPICAL APPLICATION
     Route: 065
     Dates: start: 2012
  15. AMMONIUM LACTATE [Concomitant]
     Route: 065
     Dates: start: 20111020
  16. AMMONIUM LACTATE [Concomitant]
     Route: 065
     Dates: start: 20111222
  17. AMMONIUM LACTATE [Concomitant]
     Route: 065
     Dates: start: 20111117, end: 20111221

REACTIONS (3)
  - Dermal cyst [Recovered/Resolved with Sequelae]
  - Malignant melanoma [Recovered/Resolved with Sequelae]
  - Papillary thyroid cancer [Recovered/Resolved with Sequelae]
